FAERS Safety Report 8481897-5 (Version None)
Quarter: 2012Q3

REPORT INFORMATION
  Report Type: 
  Country: None (occurrence: None)
  Receive Date: 20120702
  Receipt Date: 20120625
  Transmission Date: 20120928
  Serious: Yes (Hospitalization, Other)
  Sender: FDA-Public Use
  Company Number: US-ROCHE-1047419

PATIENT
  Sex: Male
  Weight: 90.8 kg

DRUGS (2)
  1. ACCUTANE [Suspect]
     Dates: start: 20010201, end: 20010701
  2. ACCUTANE [Suspect]
     Indication: ACNE CYSTIC
     Dates: start: 19960312

REACTIONS (10)
  - EMOTIONAL DISTRESS [None]
  - INFLAMMATORY BOWEL DISEASE [None]
  - INTESTINAL FISTULA [None]
  - MULTI-ORGAN DISORDER [None]
  - ILEAL STENOSIS [None]
  - DERMATITIS [None]
  - CROHN'S DISEASE [None]
  - RASH [None]
  - SKIN HYPERPIGMENTATION [None]
  - ECZEMA [None]
